FAERS Safety Report 5248529-0 (Version None)
Quarter: 2007Q1

REPORT INFORMATION
  Report Type: 
  Country: None (occurrence: None)
  Receive Date: 20070227
  Receipt Date: 20070215
  Transmission Date: 20070707
  Serious: Yes (Death, Hospitalization)
  Sender: FDA-Public Use
  Company Number: US-PFIZER INC-2007012920

PATIENT
  Sex: Female
  Weight: 81 kg

DRUGS (12)
  1. SUTENT [Suspect]
     Indication: NEOPLASM
     Route: 048
     Dates: start: 20070104, end: 20070118
  2. CAPECITABINE [Suspect]
     Route: 048
     Dates: start: 20070104, end: 20070118
  3. COZAAR [Concomitant]
     Route: 048
     Dates: start: 20050101, end: 20070211
  4. ZOLOFT [Concomitant]
     Route: 048
     Dates: start: 20060901, end: 20070211
  5. RESTORIL [Concomitant]
     Route: 048
     Dates: start: 20061101, end: 20070211
  6. ASCORBIC ACID [Concomitant]
     Route: 048
     Dates: start: 20050101, end: 20070211
  7. IRON SULFATETHIAMIN COMPOUND TAB [Concomitant]
     Route: 048
     Dates: start: 20061001, end: 20070211
  8. LEVOTHYROXINE SODIUM [Concomitant]
     Route: 048
     Dates: start: 20060101, end: 20070211
  9. COLACE [Concomitant]
     Route: 048
     Dates: start: 20061101, end: 20070211
  10. INNOHEP [Concomitant]
     Route: 058
     Dates: start: 20061212, end: 20070211
  11. ZOFRAN [Concomitant]
     Route: 048
     Dates: start: 20070105, end: 20070211
  12. DURAGESIC [Concomitant]
     Route: 061
     Dates: start: 20070202, end: 20070211

REACTIONS (2)
  - DEATH [None]
  - RENAL FAILURE ACUTE [None]
